FAERS Safety Report 25408476 (Version 4)
Quarter: 2025Q3

REPORT INFORMATION
  Report Type: Report from Study
  Country: KR (occurrence: KR)
  Receive Date: 20250606
  Receipt Date: 20250818
  Transmission Date: 20251021
  Serious: Yes (Hospitalization, Other)
  Sender: NOVARTIS
  Company Number: KR-002147023-NVSC2025KR066803

PATIENT
  Age: 54 Year
  Sex: Female
  Weight: 59.2 kg

DRUGS (16)
  1. KISQALI [Suspect]
     Active Substance: RIBOCICLIB SUCCINATE
     Indication: Hormone receptor positive HER2 negative breast cancer
     Route: 048
     Dates: start: 20250320, end: 20250409
  2. KISQALI [Suspect]
     Active Substance: RIBOCICLIB SUCCINATE
     Route: 048
     Dates: start: 20250417, end: 20250507
  3. KISQALI [Suspect]
     Active Substance: RIBOCICLIB SUCCINATE
     Route: 048
     Dates: start: 20250526, end: 20250602
  4. Bretra [Concomitant]
     Indication: Breast cancer
     Dosage: 2.5 MG, QD
     Route: 048
     Dates: start: 20250320
  5. XGEVA [Concomitant]
     Active Substance: DENOSUMAB
     Indication: Breast cancer
     Dosage: 120 MG, QD
     Route: 058
     Dates: start: 20250320, end: 20250320
  6. XGEVA [Concomitant]
     Active Substance: DENOSUMAB
     Indication: Metastases to bone
     Dosage: 120 MG, QD
     Route: 058
     Dates: start: 20250417, end: 20250417
  7. XGEVA [Concomitant]
     Active Substance: DENOSUMAB
     Dosage: 120 MG, QD
     Route: 058
     Dates: start: 20250602, end: 20250602
  8. Ckd cefazolin [Concomitant]
     Indication: Prophylaxis
     Dosage: 2 G, QD
     Route: 042
     Dates: start: 20250417, end: 20250417
  9. Ckd cefazolin [Concomitant]
     Dosage: 3 G, QD
     Route: 042
     Dates: start: 20250418, end: 20250423
  10. Acetphen premix [Concomitant]
     Indication: Prophylaxis
     Dosage: 100 ML, QD
     Route: 042
     Dates: start: 20250509, end: 20250510
  11. Acetphen premix [Concomitant]
     Dosage: 100 ML, QD
     Route: 042
     Dates: start: 20250515, end: 20250515
  12. CALDOLOR [Concomitant]
     Active Substance: IBUPROFEN
     Indication: Prophylaxis
     Dosage: 1200 MG, QD
     Route: 042
     Dates: start: 20250511, end: 20250511
  13. CALDOLOR [Concomitant]
     Active Substance: IBUPROFEN
     Dosage: 1600 MG, QD
     Route: 042
     Dates: start: 20250512, end: 20250514
  14. CALDOLOR [Concomitant]
     Active Substance: IBUPROFEN
     Dosage: 400 MG, QD
     Route: 042
     Dates: start: 20250511, end: 20250514
  15. CALDOLOR [Concomitant]
     Active Substance: IBUPROFEN
     Dosage: 400 MG, QD
     Route: 042
     Dates: start: 20250519, end: 20250522
  16. ULTRACET [Concomitant]
     Active Substance: ACETAMINOPHEN\TRAMADOL HYDROCHLORIDE
     Indication: Prophylaxis
     Dosage: 325 MG, QD
     Route: 048
     Dates: start: 20250509, end: 20250522

REACTIONS (5)
  - Thrombocytopenia [Recovered/Resolved]
  - Neutropenia [Recovered/Resolved]
  - Haematoma muscle [Recovered/Resolved]
  - Compartment syndrome [Recovered/Resolved]
  - Anaemia [Recovering/Resolving]

NARRATIVE: CASE EVENT DATE: 20250417
